FAERS Safety Report 4502497-5 (Version None)
Quarter: 2004Q4

REPORT INFORMATION
  Report Type: 
  Country: None (occurrence: None)
  Receive Date: 20041112
  Receipt Date: 20041105
  Transmission Date: 20050328
  Serious: Yes (Other)
  Sender: FDA-Public Use
  Company Number: GBWYE179305NOV04

PATIENT
  Sex: Male

DRUGS (1)
  1. EFFEXOR [Suspect]
     Indication: DEPRESSION
     Dosage: VERY HIGH DOSE

REACTIONS (5)
  - ANXIETY [None]
  - DELUSIONAL DISORDER, SOMATIC TYPE [None]
  - MENTAL DISORDER [None]
  - PALPITATIONS [None]
  - TREATMENT NONCOMPLIANCE [None]
